FAERS Safety Report 7040706-1 (Version None)
Quarter: 2010Q4

REPORT INFORMATION
  Report Type: 
  Country: None (occurrence: None)
  Receive Date: 20101013
  Receipt Date: 20101005
  Transmission Date: 20110411
  Serious: Yes (Hospitalization)
  Sender: FDA-Public Use
  Company Number: DE-BIOGENIDEC-2010BI029058

PATIENT
  Age: 28 Year
  Sex: Female
  Weight: 162 kg

DRUGS (1)
  1. AVONEX [Suspect]
     Indication: RELAPSING-REMITTING MULTIPLE SCLEROSIS
     Route: 030
     Dates: start: 20100401

REACTIONS (4)
  - HYPERTENSION [None]
  - RESIDUAL URINE VOLUME INCREASED [None]
  - TACHYCARDIA [None]
  - URINARY TRACT INFECTION [None]
